FAERS Safety Report 10442635 (Version 2)
Quarter: 2014Q4

REPORT INFORMATION
  Report Type: Report from Study
  Country: DE (occurrence: DE)
  Receive Date: 20140909
  Receipt Date: 20141022
  Transmission Date: 20150528
  Serious: Yes (Hospitalization, Other)
  Sender: FDA-Public Use
  Company Number: DE-ABBVIE-14K-062-1280682-00

PATIENT
  Sex: Male
  Weight: 53 kg

DRUGS (4)
  1. HUMIRA [Suspect]
     Active Substance: ADALIMUMAB
     Route: 058
     Dates: start: 201406
  2. AZATHIOPRINE. [Concomitant]
     Active Substance: AZATHIOPRINE
     Indication: PRODUCT USED FOR UNKNOWN INDICATION
     Dosage: 1-0-0
  3. HUMIRA [Suspect]
     Active Substance: ADALIMUMAB
     Indication: CROHN^S DISEASE
     Route: 058
     Dates: start: 20131205, end: 201405
  4. NOVAMINSULFON [Concomitant]
     Active Substance: METAMIZOLE
     Indication: PRODUCT USED FOR UNKNOWN INDICATION
     Dosage: 2-2-2-2

REACTIONS (6)
  - Abdominal pain [Unknown]
  - Abdominal pain [Unknown]
  - Abdominal mass [Unknown]
  - Intestinal stenosis [Unknown]
  - Enteritis [Unknown]
  - Ileus [Unknown]

NARRATIVE: CASE EVENT DATE: 2014
